FAERS Safety Report 5362719-8 (Version None)
Quarter: 2007Q2

REPORT INFORMATION
  Report Type: 
  Country: None (occurrence: None)
  Receive Date: 20070612
  Receipt Date: 20070327
  Transmission Date: 20071010
  Serious: Yes (Death)
  Sender: FDA-Public Use
  Company Number: 200704IM000150

PATIENT
  Age: 9 Year
  Sex: Male

DRUGS (1)
  1. INTERFERON GAMMA-1B [Suspect]
     Indication: CHRONIC GRANULOMATOUS DISEASE
     Dosage: IU/ML

REACTIONS (3)
  - CANDIDA SEPSIS [None]
  - ENTEROBACTER SEPSIS [None]
  - STAPHYLOCOCCAL SEPSIS [None]
